FAERS Safety Report 7650222-1 (Version None)
Quarter: 2011Q3

REPORT INFORMATION
  Report Type: 
  Country: None (occurrence: None)
  Receive Date: 20110802
  Receipt Date: 20110726
  Transmission Date: 20111222
  Serious: Yes (Life-Threatening, Hospitalization)
  Sender: FDA-Public Use
  Company Number: CELGENEUS-087-21880-10111721

PATIENT
  Age: 76 Year
  Sex: Male
  Weight: 56 kg

DRUGS (14)
  1. PRAVASTATIN SODIUM [Suspect]
     Dosage: 10 MILLIGRAM
     Route: 048
     Dates: start: 20090211, end: 20101112
  2. LENDORMIN D [Concomitant]
     Dosage: .25 MILLIGRAM
     Route: 048
     Dates: start: 20101108
  3. MAXIPIME [Concomitant]
     Dosage: 2 GRAM
     Route: 041
     Dates: start: 20101123, end: 20101126
  4. PRAVASTATIN SODIUM [Suspect]
     Dosage: 10 MILLIGRAM
     Route: 048
     Dates: start: 20101108, end: 20101113
  5. DECADRON [Concomitant]
     Indication: MULTIPLE MYELOMA
     Dosage: 19.8 MILLIGRAM
     Route: 041
     Dates: start: 20101108, end: 20101108
  6. MAXIPIME [Concomitant]
     Indication: MULTIPLE MYELOMA
     Dosage: 1 GRAM
     Route: 041
     Dates: start: 20101122, end: 20101122
  7. ALLOPURINOL [Concomitant]
     Dosage: 100 MILLIGRAM
     Route: 048
     Dates: start: 20101108
  8. SULFAMETHOXAZOLE [Concomitant]
     Indication: MULTIPLE MYELOMA
     Dosage: 2 TABLET
     Route: 048
     Dates: start: 20101108, end: 20101109
  9. LOXONIN TAPE [Concomitant]
     Route: 065
  10. WARFARIN SODIUM [Concomitant]
     Indication: PROPHYLAXIS
     Dosage: 1 MILLIGRAM
     Route: 048
     Dates: start: 20101108, end: 20101115
  11. METHYLCOBAL [Concomitant]
     Dosage: 1500 MICROGRAM
     Route: 048
     Dates: start: 20101108
  12. REVLIMID [Suspect]
     Indication: MULTIPLE MYELOMA
     Dosage: 25 MILLIGRAM
     Route: 048
     Dates: start: 20101108, end: 20101113
  13. LEVOFLOXACIN [Concomitant]
     Indication: MULTIPLE MYELOMA
     Dosage: 500 MILLIGRAM
     Route: 048
     Dates: start: 20101120, end: 20101122
  14. DIFLUCAN [Concomitant]
     Indication: CRYPTOCOCCOSIS
     Dosage: 100 MILLIGRAM
     Route: 048
     Dates: start: 20101108

REACTIONS (4)
  - HAEMOGLOBIN DECREASED [None]
  - WHITE BLOOD CELL COUNT DECREASED [None]
  - PLATELET COUNT DECREASED [None]
  - RHABDOMYOLYSIS [None]
